FAERS Safety Report 25773864 (Version 1)
Quarter: 2025Q3

REPORT INFORMATION
  Report Type: Spontaneous
  Country: US (occurrence: None)
  Receive Date: 20250907
  Receipt Date: 20250907
  Transmission Date: 20251021
  Serious: Yes (Other)
  Sender: FDA-CTU
  Company Number: None

PATIENT
  Age: 45 Year
  Sex: Male
  Weight: 88.2 kg

DRUGS (1)
  1. 7-HYDROXYMITRAGYNINE [Suspect]
     Active Substance: 7-HYDROXYMITRAGYNINE
     Indication: Pain
     Dosage: EVERY 6 HOURS ORAL
     Route: 048
     Dates: start: 20250820, end: 20250904

REACTIONS (3)
  - Drug dependence [None]
  - Therapy interrupted [None]
  - Withdrawal syndrome [None]

NARRATIVE: CASE EVENT DATE: 20250830
